FAERS Safety Report 6160448-4 (Version None)
Quarter: 2009Q2

REPORT INFORMATION
  Report Type: 
  Country: None (occurrence: None)
  Receive Date: 20090420
  Receipt Date: 20090415
  Transmission Date: 20091009
  Serious: Yes (Life-Threatening, Hospitalization)
  Sender: FDA-Public Use
  Company Number: GB-ASTRAZENECA-2009GB00892

PATIENT
  Age: 46 Year
  Sex: Male
  Weight: 100 kg

DRUGS (5)
  1. OMEPRAZOLE [Suspect]
     Indication: HIATUS HERNIA
     Dosage: 10 MG
     Route: 048
     Dates: start: 19990508, end: 20080510
  2. ALENDRONIC ACID [Concomitant]
  3. ALFACALCIDOL [Concomitant]
  4. CALCICHEW [Concomitant]
  5. IBUPROFEN [Concomitant]

REACTIONS (4)
  - HYPOMAGNESAEMIA [None]
  - SYNCOPE [None]
  - TETANY [None]
  - VISUAL IMPAIRMENT [None]
